FAERS Safety Report 7989651-5 (Version None)
Quarter: 2011Q4

REPORT INFORMATION
  Report Type: 
  Country: None (occurrence: None)
  Receive Date: 20111219
  Receipt Date: 20111213
  Transmission Date: 20120403
  Serious: Yes (Other)
  Sender: FDA-Public Use
  Company Number: FR-B.I. PHARMACEUTICALS,INC./RIDGEFIELD-2011-FF-01046FF

PATIENT
  Sex: Male
  Weight: 62 kg

DRUGS (5)
  1. ACETAMINOPHEN [Concomitant]
     Indication: PAIN
     Dosage: 3000 MG
     Route: 048
     Dates: start: 20111105
  2. VOLTAREN [Concomitant]
     Indication: PAIN
     Dosage: 150 MG
     Route: 048
     Dates: start: 20111105
  3. NEXIUM [Concomitant]
     Indication: ABDOMINAL PAIN UPPER
     Dosage: 40 MG
     Route: 048
     Dates: start: 20111105
  4. XALATAN [Concomitant]
     Dosage: 3 UNK
     Route: 031
  5. PRADAXA [Suspect]
     Indication: THROMBOSIS PROPHYLAXIS
     Dosage: 220 MG
     Route: 048
     Dates: start: 20111105, end: 20111109

REACTIONS (2)
  - DEEP VEIN THROMBOSIS [None]
  - DRUG INEFFECTIVE [None]
